FAERS Safety Report 21602336 (Version 2)
Quarter: 2022Q4

REPORT INFORMATION
  Report Type: Spontaneous
  Country: KR (occurrence: KR)
  Receive Date: 20221116
  Receipt Date: 20221128
  Transmission Date: 20230113
  Serious: Yes (Other)
  Sender: FDA-Public Use
  Company Number: KR-MYLANLABS-2022M1126813

PATIENT
  Age: 69 Year
  Sex: Female

DRUGS (4)
  1. PIPERACILLIN AND TAZOBACTAM [Suspect]
     Active Substance: PIPERACILLIN SODIUM\TAZOBACTAM SODIUM
     Indication: Post laminectomy syndrome
     Dosage: 1 DOSAGE FORM, QD
     Route: 065
     Dates: start: 20190301, end: 20190305
  2. LYRICA [Concomitant]
     Active Substance: PREGABALIN
     Indication: Post laminectomy syndrome
     Dosage: 1 DOSAGE FORM, QD
     Route: 065
     Dates: start: 20190224, end: 20190305
  3. CELECOXIB [Concomitant]
     Active Substance: CELECOXIB
     Indication: Post laminectomy syndrome
     Dosage: 500 MILLIGRAM, QD
     Route: 065
     Dates: start: 20190301, end: 20190305
  4. LEVOFLOXACIN [Concomitant]
     Active Substance: LEVOFLOXACIN
     Indication: Post laminectomy syndrome
     Dosage: 1 DOSAGE FORM, QD
     Route: 065
     Dates: start: 20190301, end: 20190310

REACTIONS (2)
  - Renal impairment [Recovered/Resolved]
  - Off label use [Unknown]

NARRATIVE: CASE EVENT DATE: 20190301
